FAERS Safety Report 8908090 (Version 2)
Quarter: 2012Q4

REPORT INFORMATION
  Report Type: 
  Country: US (occurrence: US)
  Receive Date: 20121113
  Receipt Date: 20121226
  Transmission Date: 20130627
  Serious: No
  Sender: FDA-Public Use
  Company Number: US-PFIZER INC-2012281119

PATIENT
  Age: 14 Year
  Sex: Male

DRUGS (2)
  1. GENOTROPIN [Suspect]
     Indication: GROWTH HORMONE DEFICIENCY
     Dosage: 1.4 mg, 1x/day
     Route: 058
     Dates: start: 2010, end: 2012
  2. GENOTROPIN [Suspect]
     Dosage: 2.6 mg, 1x/day
     Route: 058

REACTIONS (2)
  - Injection site pain [Unknown]
  - Pain in extremity [Unknown]
